FAERS Safety Report 4840425-3 (Version None)
Quarter: 2005Q4

REPORT INFORMATION
  Report Type: 
  Country: None (occurrence: None)
  Receive Date: 20051101
  Receipt Date: 20050729
  Transmission Date: 20060501
  Serious: No
  Sender: FDA-Public Use
  Company Number: MK200508-0038-1

PATIENT
  Age: 54 Year
  Sex: Female

DRUGS (1)
  1. NEUTROSPEC [Suspect]
     Indication: ARTHRITIS INFECTIVE
     Dosage: 15 MCI, ONE TIME, IV
     Route: 042
     Dates: start: 20050729, end: 20050729

REACTIONS (3)
  - DIZZINESS [None]
  - HYPERHIDROSIS [None]
  - NAUSEA [None]
